FAERS Safety Report 4971374-8 (Version None)
Quarter: 2006Q2

REPORT INFORMATION
  Report Type: 
  Country: None (occurrence: None)
  Receive Date: 20060406
  Receipt Date: 20060324
  Transmission Date: 20061013
  Serious: Yes (Other)
  Sender: FDA-Public Use
  Company Number: 2006041315

PATIENT
  Age: 83 Year
  Sex: Female

DRUGS (2)
  1. CEFOPERAZONE/SULBACTAM (SULBACTAM, CEFOPERAZONE) [Suspect]
     Indication: CYSTITIS
     Dosage: 2 GRAM (1 GRAM, 1 IN 12 HR), INTRAVENOUS
     Route: 042
  2. CEFUROXIME [Concomitant]

REACTIONS (5)
  - ACTIVATED PARTIAL THROMBOPLASTIN TIME PROLONGED [None]
  - CONDITION AGGRAVATED [None]
  - HAEMATURIA [None]
  - HAEMORRHAGE URINARY TRACT [None]
  - PROTHROMBIN TIME PROLONGED [None]
